FAERS Safety Report 26100712 (Version 1)
Quarter: 2025Q4

REPORT INFORMATION
  Report Type: Spontaneous
  Country: EU (occurrence: EU)
  Receive Date: 20251128
  Receipt Date: 20251128
  Transmission Date: 20260117
  Serious: Yes (Other)
  Sender: BRISTOL-MYERS SQUIBB COMPANY
  Company Number: EU-BRISTOL-MYERS SQUIBB COMPANY-2025-157422

PATIENT
  Age: 84 Year
  Sex: Female
  Weight: 53 kg

DRUGS (1)
  1. ROMIDEPSIN [Suspect]
     Active Substance: ROMIDEPSIN
     Indication: Product used for unknown indication
     Dates: start: 202110, end: 202209

REACTIONS (3)
  - Staphylococcal sepsis [Unknown]
  - Intervertebral discitis [Unknown]
  - Pyoderma gangrenosum [Unknown]
